FAERS Safety Report 16412660 (Version 1)
Quarter: 2019Q2

REPORT INFORMATION
  Report Type: Spontaneous
  Country: PL (occurrence: PL)
  Receive Date: 20190611
  Receipt Date: 20190611
  Transmission Date: 20190711
  Serious: Yes (Other)
  Sender: FDA-Public Use
  Company Number: PL-AUROBINDO-AUR-APL-2019-033380

PATIENT

DRUGS (17)
  1. MELPHALAN. [Suspect]
     Active Substance: MELPHALAN
     Indication: NON-HODGKIN^S LYMPHOMA REFRACTORY
     Dosage: BEAM REGIMEN
     Route: 065
  2. VINBLASTINE [Suspect]
     Active Substance: VINBLASTINE
     Dosage: 6 CYCLES, ABVD REGIMEN
     Route: 065
  3. ENDOXAN [Suspect]
     Active Substance: CYCLOPHOSPHAMIDE
     Indication: NON-HODGKIN^S LYMPHOMA REFRACTORY
     Dosage: BEACOPP REGIMEN
     Route: 065
  4. DOXORUBICIN [Suspect]
     Active Substance: DOXORUBICIN
     Indication: NON-HODGKIN^S LYMPHOMA REFRACTORY
     Dosage: BEACOPP REGIMEN
     Route: 065
  5. VINCRISTINE [Suspect]
     Active Substance: VINCRISTINE
     Indication: NON-HODGKIN^S LYMPHOMA REFRACTORY
     Dosage: BEACOPP REGIMEN
     Route: 016
  6. DACARBAZINE. [Suspect]
     Active Substance: DACARBAZINE
     Indication: NON-HODGKIN^S LYMPHOMA REFRACTORY
     Dosage: ABVD REGIMEN
     Route: 016
  7. DOXORUBICIN [Suspect]
     Active Substance: DOXORUBICIN
     Dosage: 6 CYCLES, ABVD REGIMEN
     Route: 065
  8. BLEOMYCIN [Suspect]
     Active Substance: BLEOMYCIN SULFATE
     Indication: NON-HODGKIN^S LYMPHOMA REFRACTORY
     Dosage: BEACOPP REGIMEN
     Route: 065
  9. CISPLATIN. [Suspect]
     Active Substance: CISPLATIN
     Indication: NON-HODGKIN^S LYMPHOMA REFRACTORY
     Dosage: ESHAP REGIMEN
     Route: 016
  10. ETOPOSIDE. [Suspect]
     Active Substance: ETOPOSIDE
     Indication: PRODUCT USED FOR UNKNOWN INDICATION
     Dosage: ESHAP REGIMEN
     Route: 016
  11. BLEOMYCIN [Suspect]
     Active Substance: BLEOMYCIN SULFATE
     Dosage: 6 CYCLES, ABVD REGIMEN
     Route: 065
  12. PROCARBAZINE [Suspect]
     Active Substance: PROCARBAZINE
     Indication: NON-HODGKIN^S LYMPHOMA REFRACTORY
     Dosage: BEACOPP REGIMEN
     Route: 065
  13. VINBLASTINE [Suspect]
     Active Substance: VINBLASTINE
     Indication: NON-HODGKIN^S LYMPHOMA REFRACTORY
     Dosage: ABVD REGIMEN
     Route: 016
  14. METHYLPREDNISOLONE. [Suspect]
     Active Substance: METHYLPREDNISOLONE
     Indication: NON-HODGKIN^S LYMPHOMA REFRACTORY
     Dosage: ESHAP REGIMEN
     Route: 016
  15. CARMUSTINE. [Suspect]
     Active Substance: CARMUSTINE
     Indication: NON-HODGKIN^S LYMPHOMA REFRACTORY
     Dosage: BEAM REGIMEN
     Route: 065
  16. DACARBAZINE. [Suspect]
     Active Substance: DACARBAZINE
     Dosage: 6 CYCLES, ABVD REGIMEN
     Route: 065
  17. CYTARABINE. [Suspect]
     Active Substance: CYTARABINE
     Indication: NON-HODGKIN^S LYMPHOMA REFRACTORY
     Dosage: BEAM REGIMEN
     Route: 065

REACTIONS (1)
  - Malignant neoplasm progression [Recovered/Resolved]
